FAERS Safety Report 10455701 (Version 2)
Quarter: 2014Q4

REPORT INFORMATION
  Report Type: Spontaneous
  Country: US (occurrence: US)
  Receive Date: 20140916
  Receipt Date: 20141015
  Transmission Date: 20150528
  Serious: Yes (Hospitalization, Other)
  Sender: FDA-Public Use
  Company Number: US-ASTELLAS-2014US008994

PATIENT
  Age: 71 Year
  Sex: Male

DRUGS (1)
  1. XTANDI [Suspect]
     Active Substance: ENZALUTAMIDE
     Indication: PROSTATE CANCER
     Route: 048
     Dates: start: 201402

REACTIONS (12)
  - Dyspnoea [Unknown]
  - Fatigue [Unknown]
  - Vertigo [Unknown]
  - Sinusitis [Unknown]
  - Tonsillitis [Unknown]
  - Swollen tongue [Unknown]
  - Peripheral swelling [Unknown]
  - Initial insomnia [Unknown]
  - Anxiety [Unknown]
  - Depression [Unknown]
  - Asthenia [Unknown]
  - Peripheral swelling [Unknown]

NARRATIVE: CASE EVENT DATE: 20140611
